FAERS Safety Report 8926069 (Version 1)
Quarter: 2012Q4

REPORT INFORMATION
  Report Type: 
  Country: GB (occurrence: GB)
  Receive Date: 20121126
  Receipt Date: 20121126
  Transmission Date: 20130627
  Serious: Yes (Other)
  Sender: FDA-Public Use
  Company Number: GB-BAYER-2012-123206

PATIENT
  Sex: Female

DRUGS (1)
  1. CANESTEN COMBI 500MG PESSARY + 2% CREAM [Suspect]
     Dosage: used the cream ^a bit^ not used the cream everyday
     Dates: start: 20121119

REACTIONS (1)
  - Genital haemorrhage [None]
